FAERS Safety Report 23336481 (Version 1)
Quarter: 2023Q4

REPORT INFORMATION
  Report Type: Spontaneous
  Country: ES (occurrence: ES)
  Receive Date: 20231226
  Receipt Date: 20231226
  Transmission Date: 20240109
  Serious: Yes (Hospitalization, Other)
  Sender: FDA-Public Use
  Company Number: None

PATIENT
  Age: 76 Year
  Sex: Male

DRUGS (3)
  1. APIXABAN [Suspect]
     Active Substance: APIXABAN
     Indication: Atrial fibrillation
     Dosage: FREQUENCY TIME: 12 HOUR
     Route: 048
     Dates: start: 20230310, end: 20230510
  2. ISONIAZID\PYRIDOXINE HYDROCHLORIDE [Suspect]
     Active Substance: ISONIAZID\PYRIDOXINE HYDROCHLORIDE
     Indication: Tuberculosis
     Dosage: FREQUENCY TIME: 1 DAY
     Route: 048
     Dates: start: 20230310, end: 20230510
  3. ACETAMINOPHEN [Suspect]
     Active Substance: ACETAMINOPHEN
     Indication: Pain
     Dosage: FREQUENCY TIME: 12 HOUR
     Route: 048
     Dates: start: 20230310, end: 20230510

REACTIONS (1)
  - Hepatitis cholestatic [Recovered/Resolved]

NARRATIVE: CASE EVENT DATE: 20230510
